FAERS Safety Report 23546118 (Version 3)
Quarter: 2024Q1

REPORT INFORMATION
  Report Type: Spontaneous
  Country: US (occurrence: US)
  Receive Date: 20240220
  Receipt Date: 20240315
  Transmission Date: 20240410
  Serious: Yes (Other)
  Sender: FDA-Public Use
  Company Number: US-BAUSCH-BL-2024-002545

PATIENT
  Age: 75 Year
  Sex: Female

DRUGS (1)
  1. DILTIAZEM HYDROCHLORIDE [Suspect]
     Active Substance: DILTIAZEM HYDROCHLORIDE
     Indication: Product used for unknown indication
     Route: 065
     Dates: start: 2018

REACTIONS (6)
  - Emergency care [Unknown]
  - Illness [Unknown]
  - Abdominal discomfort [Unknown]
  - Dyspnoea [Unknown]
  - Dizziness [Unknown]
  - Drug ineffective [Unknown]
